FAERS Safety Report 19745544 (Version 2)
Quarter: 2021Q3

REPORT INFORMATION
  Report Type: Spontaneous
  Country: PL (occurrence: PL)
  Receive Date: 20210825
  Receipt Date: 20210915
  Transmission Date: 20211014
  Serious: Yes (Hospitalization, Other)
  Sender: FDA-Public Use
  Company Number: PL-PFIZER INC-202101084091

PATIENT
  Sex: Male

DRUGS (7)
  1. ZESSLY [Suspect]
     Active Substance: INFLIXIMAB
     Indication: CROHN^S DISEASE
     Dosage: 400 ML
     Route: 065
     Dates: start: 20210630
  2. ZESSLY [Suspect]
     Active Substance: INFLIXIMAB
     Dosage: 400 ML
     Route: 065
     Dates: start: 20210714, end: 20210714
  3. URSOFALK [Concomitant]
     Active Substance: URSODIOL
     Dosage: UNK
  4. POLPRAZOL [OMEPRAZOLE] [Concomitant]
     Active Substance: OMEPRAZOLE
     Dosage: UNK
  5. ASAMAX [Concomitant]
     Active Substance: MESALAMINE
     Dosage: UNK
  6. CALPEROS [CALCIUM CARBONATE] [Concomitant]
     Active Substance: CALCIUM CARBONATE
     Dosage: UNK
  7. VITAMIN D3 [Concomitant]
     Active Substance: CHOLECALCIFEROL
     Dosage: UNK

REACTIONS (5)
  - Dysphagia [Recovered/Resolved]
  - Pharyngeal mass [Recovered/Resolved]
  - Erythema [Recovered/Resolved]
  - Anxiety [Recovered/Resolved]
  - Shock [Unknown]

NARRATIVE: CASE EVENT DATE: 20210714
